FAERS Safety Report 8174722-3 (Version None)
Quarter: 2012Q1

REPORT INFORMATION
  Report Type: 
  Country: None (occurrence: None)
  Receive Date: 20120229
  Receipt Date: 20120125
  Transmission Date: 20120608
  Serious: No
  Sender: FDA-Public Use
  Company Number: JP-GLAXOSMITHKLINE-B0777804A

PATIENT

DRUGS (3)
  1. LAMICTAL [Suspect]
     Route: 048
  2. LITHIUM CARBONATE [Concomitant]
     Route: 048
  3. TEGRETOL [Concomitant]
     Route: 048

REACTIONS (1)
  - NO ADVERSE EVENT [None]
